FAERS Safety Report 9780067 (Version 1)
Quarter: 2013Q4

REPORT INFORMATION
  Report Type: Spontaneous
  Country: US (occurrence: US)
  Receive Date: 20131223
  Receipt Date: 20131223
  Transmission Date: 20140711
  Serious: Yes (Other)
  Sender: FDA-Public Use
  Company Number: US-WATSON-2013-22939

PATIENT
  Sex: Male

DRUGS (1)
  1. TRELSTAR UNKNOWN STRENGTH (WATSON LABORATORIES) [Suspect]
     Indication: PROSTATE CANCER
     Dosage: UNK, UNKNOWN
     Route: 030

REACTIONS (2)
  - Atrial fibrillation [Not Recovered/Not Resolved]
  - Hot flush [Not Recovered/Not Resolved]
